FAERS Safety Report 5458679-1 (Version None)
Quarter: 2007Q3

REPORT INFORMATION
  Report Type: 
  Country: None (occurrence: None)
  Receive Date: 20070919
  Receipt Date: 20070917
  Transmission Date: 20080115
  Serious: Yes (Death, Other)
  Sender: FDA-Public Use
  Company Number: JP-BRISTOL-MYERS SQUIBB COMPANY-13910641

PATIENT
  Age: 44 Year
  Sex: Male

DRUGS (5)
  1. CYCLOPHOSPHAMIDE [Suspect]
  2. METHOTREXATE [Suspect]
  3. CYCLOSPORINE [Suspect]
  4. PREDNISONE [Suspect]
  5. RADIOTHERAPY [Suspect]

REACTIONS (2)
  - DEATH [None]
  - LEUKAEMIA [None]
